FAERS Safety Report 8997041 (Version 1)
Quarter: 2012Q4

REPORT INFORMATION
  Report Type: Spontaneous
  Country: BR (occurrence: None)
  Receive Date: 20121221
  Receipt Date: 20121221
  Transmission Date: 20130627
  Serious: Yes (Hospitalization, Other)
  Sender: FDA-Public Use
  Company Number: AUR-APL-2012-05359

PATIENT
  Age: 50 Year
  Sex: Female

DRUGS (6)
  1. LISINOPRIL (LISINOPRIL) [Suspect]
     Indication: HYPERTENSION
     Dates: start: 2000, end: 2010
  2. LISINOPRIL (LISINOPRIL) [Suspect]
     Indication: HYPERTENSION
     Route: 048
  3. LISINOPRIL (LISINOPRIL) [Suspect]
     Indication: HYPERTENSION
  4. LISINOPRIL (LISINOPRIL) [Suspect]
     Indication: HYPERTENSION
     Route: 048
  5. SELOPRESS ZOK (SELOKEN COMP.) [Suspect]
     Indication: CARDIAC ARRHYTHMIA
     Dosage: 100/12.5 mg once daily, Oral
     Dates: start: 2002
  6. CAPTOPRIL (CAPTOPRIL) [Concomitant]

REACTIONS (8)
  - Anaemia [None]
  - Uterine leiomyoma [None]
  - Weight increased [None]
  - Depression [None]
  - Drug ineffective [None]
  - Blood pressure increased [None]
  - Fatigue [None]
  - Treatment noncompliance [None]
